FAERS Safety Report 8767208 (Version 4)
Quarter: 2013Q3

REPORT INFORMATION
  Report Type: Report from Study
  Country: JP (occurrence: JP)
  Receive Date: 20120904
  Receipt Date: 20130816
  Transmission Date: 20140515
  Serious: Yes (Other)
  Sender: FDA-Public Use
  Company Number: JP-VERTEX PHARMACEUTICAL INC.-2012-020350

PATIENT
  Age: 62 Year
  Sex: Male

DRUGS (18)
  1. VX-950 (TELAPREVIR) [Suspect]
     Indication: CHRONIC HEPATITIS C
     Dosage: 2250 MG, QD
     Route: 048
     Dates: start: 20120621, end: 20120623
  2. RIBAVIRIN [Suspect]
     Indication: CHRONIC HEPATITIS C
     Dosage: 600 MG, QD
     Route: 048
     Dates: start: 20120621, end: 20120627
  3. RIBAVIRIN [Suspect]
     Dosage: 800 MG, QD
     Route: 048
     Dates: start: 20120628, end: 20120709
  4. RIBAVIRIN [Suspect]
     Dosage: 600 MG, QD
     Route: 048
     Dates: start: 20120710, end: 20120827
  5. RIBAVIRIN [Suspect]
     Dosage: 400 MG, QD
     Route: 048
     Dates: start: 20120828, end: 20121002
  6. PEGINTERFERON ALFA-2B [Suspect]
     Indication: CHRONIC HEPATITIS C
     Dosage: 1.5 ?G/KG, QW
     Route: 058
     Dates: start: 20120621, end: 20120918
  7. PEGINTERFERON ALFA-2B [Suspect]
     Dosage: 0.8 ?G/KG, QW
     Route: 058
     Dates: start: 20120925, end: 20120925
  8. MARZULENE S [Concomitant]
     Dosage: 500 MG, QD
     Route: 048
     Dates: end: 20120709
  9. LENDORMIN [Concomitant]
     Dosage: 0.25 MG, QD
     Route: 048
     Dates: end: 20120709
  10. AMLODIPINE [Concomitant]
     Dosage: 5 MG, QD
     Route: 048
     Dates: end: 20120626
  11. GASLON N [Concomitant]
     Dosage: 0.5 G, QD
     Route: 048
     Dates: end: 20120626
  12. BLOPRESS [Concomitant]
     Dosage: 4 MG, QD
     Route: 048
     Dates: end: 20120626
  13. ROHYPNOL [Concomitant]
     Dosage: 2 MG, QD
     Route: 048
     Dates: end: 20120626
  14. RINDERON-VG [Concomitant]
     Dosage: UNK, QD
     Route: 061
     Dates: end: 20120813
  15. LACTEC [Concomitant]
     Dosage: 500 ML, QD
     Route: 042
     Dates: start: 20120621, end: 20120628
  16. LOXONIN [Concomitant]
     Dosage: 60 MG, QD/PRN
     Route: 048
     Dates: start: 20120621, end: 20121001
  17. MUCOSTA [Concomitant]
     Dosage: 100 MG, QD/PRN
     Route: 048
     Dates: start: 20120621, end: 20121001
  18. AMLODIN OD [Concomitant]
     Dosage: 5 MG, QD
     Route: 048
     Dates: start: 20120627, end: 20120709

REACTIONS (3)
  - White blood cell count decreased [Recovered/Resolved]
  - Rash [Recovered/Resolved]
  - Neutrophil count decreased [Recovered/Resolved]
